FAERS Safety Report 8473242-6 (Version None)
Quarter: 2012Q2

REPORT INFORMATION
  Report Type: 
  Country: None (occurrence: None)
  Receive Date: 20120627
  Receipt Date: 20120618
  Transmission Date: 20120825
  Serious: Yes (Hospitalization, Disabling, Other)
  Sender: FDA-Public Use
  Company Number: US-MERCK-1204USA03122

PATIENT
  Age: 50 Year
  Sex: Female
  Weight: 56 kg

DRUGS (9)
  1. FOSAMAX [Suspect]
     Route: 048
     Dates: start: 20080224, end: 20080803
  2. FOSAMAX [Suspect]
     Route: 048
     Dates: start: 20080224, end: 20080803
  3. ALLEGRA-D 12 HOUR [Concomitant]
     Indication: HYPERSENSITIVITY
     Route: 065
     Dates: start: 20051024, end: 20051122
  4. CIPROFLOXACIN [Concomitant]
     Indication: INFECTION
     Route: 065
     Dates: start: 20050512, end: 20060808
  5. FEXOFENADINE HYDROCHLORIDE [Concomitant]
     Indication: HYPERSENSITIVITY
     Route: 065
     Dates: start: 20071022, end: 20080818
  6. FOSAMAX [Suspect]
     Indication: OSTEOPENIA
     Route: 048
     Dates: start: 20050831, end: 20080218
  7. BONIVA [Suspect]
     Indication: OSTEOPOROSIS
     Route: 048
     Dates: start: 20080801, end: 20090831
  8. ALBUTEROL [Concomitant]
     Route: 065
     Dates: start: 20051115, end: 20051129
  9. FOSAMAX [Suspect]
     Indication: OSTEOPOROSIS
     Route: 048
     Dates: start: 20050831, end: 20080218

REACTIONS (37)
  - PULMONARY EMBOLISM [None]
  - OVARIAN CYST [None]
  - LOW TURNOVER OSTEOPATHY [None]
  - SEDATION [None]
  - BRONCHITIS CHRONIC [None]
  - DEPRESSION [None]
  - TENDERNESS [None]
  - RADIUS FRACTURE [None]
  - PNEUMONIA [None]
  - CONSTIPATION [None]
  - FEMORAL NECK FRACTURE [None]
  - ADVERSE EVENT [None]
  - HYPERTENSION [None]
  - URINARY RETENTION POSTOPERATIVE [None]
  - THROMBOCYTOPENIA [None]
  - PAIN [None]
  - DYSURIA [None]
  - EAR PAIN [None]
  - POSTMENOPAUSAL HAEMORRHAGE [None]
  - CEREBROVASCULAR ACCIDENT [None]
  - ANAEMIA POSTOPERATIVE [None]
  - RESPIRATORY TRACT INFECTION [None]
  - NUCHAL RIGIDITY [None]
  - DYSLIPIDAEMIA [None]
  - NEURALGIA [None]
  - DEEP VEIN THROMBOSIS [None]
  - BREAST DISORDER [None]
  - ANXIETY [None]
  - BLOOD DISORDER [None]
  - BREAST TENDERNESS [None]
  - INFECTION [None]
  - GASTROOESOPHAGEAL REFLUX DISEASE [None]
  - ATRIAL SEPTAL DEFECT [None]
  - UTERINE LEIOMYOMA [None]
  - DIZZINESS [None]
  - OEDEMA PERIPHERAL [None]
  - ARRHYTHMIA SUPRAVENTRICULAR [None]
